FAERS Safety Report 9156556 (Version 1)
Quarter: 2013Q1

REPORT INFORMATION
  Report Type: Spontaneous
  Country: US (occurrence: None)
  Receive Date: 20130307
  Receipt Date: 20130307
  Transmission Date: 20140127
  Serious: No
  Sender: FDA-Public Use
  Company Number: None

PATIENT
  Age: 39 Year
  Sex: Female
  Weight: 56.7 kg

DRUGS (1)
  1. BUPROPION XL [Suspect]
     Indication: ANXIETY
     Route: 048
     Dates: start: 20130104, end: 20130305

REACTIONS (8)
  - Dry mouth [None]
  - Constipation [None]
  - Increased appetite [None]
  - Sleep disorder [None]
  - Middle insomnia [None]
  - Mucous membrane disorder [None]
  - Headache [None]
  - Product substitution issue [None]
